FAERS Safety Report 9212762 (Version 1)
Quarter: 2013Q2

REPORT INFORMATION
  Report Type: Spontaneous
  Country: US (occurrence: US)
  Receive Date: 20130405
  Receipt Date: 20130405
  Transmission Date: 20140414
  Serious: Yes (Hospitalization)
  Sender: FDA-Public Use
  Company Number: US-SHIRE-ALL1-2013-02119

PATIENT
  Sex: Male

DRUGS (1)
  1. VYVANSE [Suspect]
     Indication: PRODUCT USED FOR UNKNOWN INDICATION
     Dosage: 210 MG (THREE 70 MG CAPSULES), 1X/DAY:QD
     Route: 048

REACTIONS (2)
  - Hospitalisation [Unknown]
  - Prescribed overdose [Recovered/Resolved]
